FAERS Safety Report 24291794 (Version 1)
Quarter: 2024Q3

REPORT INFORMATION
  Report Type: Spontaneous
  Country: GB (occurrence: GB)
  Receive Date: 20240906
  Receipt Date: 20240906
  Transmission Date: 20241017
  Serious: Yes (Disabling, Other)
  Sender: ELI LILLY AND CO
  Company Number: None

PATIENT
  Sex: Female
  Weight: 92 kg

DRUGS (6)
  1. DULOXETINE HYDROCHLORIDE [Suspect]
     Active Substance: DULOXETINE HYDROCHLORIDE
     Indication: Arthralgia
     Dosage: 60 MG, UNKNOWN
     Route: 065
     Dates: start: 20240212, end: 20240630
  2. SERTRALINE [Concomitant]
     Active Substance: SERTRALINE HYDROCHLORIDE
     Indication: Depression
     Dosage: 150 MG, UNKNOWN
     Route: 065
  3. ATORVASTATIN [Concomitant]
     Active Substance: ATORVASTATIN
     Indication: Blood cholesterol increased
     Dosage: 40 MG, UNKNOWN
     Route: 065
     Dates: start: 20200101
  4. PROGESTERONE [Concomitant]
     Active Substance: PROGESTERONE
     Indication: Hormone replacement therapy
     Dosage: 100 MG, UNKNOWN
     Route: 065
  5. PROPRANOLOL [Concomitant]
     Active Substance: PROPRANOLOL HYDROCHLORIDE
     Indication: Anxiety
     Dosage: 90 MG, UNKNOWN
     Route: 065
  6. ESTROGENS [Concomitant]
     Active Substance: ESTROGENS
     Indication: Hormone replacement therapy
     Dosage: 100 MG, UNKNOWN
     Route: 065
     Dates: start: 20230101

REACTIONS (11)
  - Paranoia [Recovered/Resolved]
  - Depression [Recovered/Resolved]
  - Eye pain [Recovered/Resolved]
  - Intentional self-injury [Recovered/Resolved]
  - Myalgia [Recovered/Resolved]
  - Heavy menstrual bleeding [Recovered/Resolved]
  - Vision blurred [Recovered/Resolved]
  - Headache [Recovered/Resolved]
  - Suicidal ideation [Recovered/Resolved]
  - Anxiety [Recovered/Resolved]
  - Off label use [Unknown]

NARRATIVE: CASE EVENT DATE: 20240212
